FAERS Safety Report 13201362 (Version 11)
Quarter: 2018Q4

REPORT INFORMATION
  Report Type: Report from Study
  Country: JP (occurrence: JP)
  Receive Date: 20170209
  Receipt Date: 20181221
  Transmission Date: 20190204
  Serious: Yes (Hospitalization, Other)
  Sender: FDA-Public Use
  Company Number: JP-AMGEN-JPNCT2016038318

PATIENT
  Age: 74 Year
  Sex: Male
  Weight: 58.4 kg

DRUGS (39)
  1. OXALIPLATIN. [Suspect]
     Active Substance: OXALIPLATIN
     Dosage: UNK
     Route: 041
     Dates: start: 20170112
  2. FLUOROURACIL. [Suspect]
     Active Substance: FLUOROURACIL
     Dosage: 3900 MG, Q2WEEKS
     Route: 041
     Dates: start: 20160126, end: 20160301
  3. FLUOROURACIL. [Suspect]
     Active Substance: FLUOROURACIL
     Dosage: 3900 MG, Q2WEEKS
     Route: 040
     Dates: start: 20160510, end: 20160510
  4. OXALIPLATIN. [Suspect]
     Active Substance: OXALIPLATIN
     Dosage: 68 MG/M2, Q2WK
     Route: 041
     Dates: start: 20160621, end: 20160621
  5. CALCIUM LEVOFOLINATE [Suspect]
     Active Substance: LEVOLEUCOVORIN CALCIUM
     Dosage: 325 MG, Q2WEEKS
     Route: 041
     Dates: start: 20160329, end: 20160412
  6. CALCIUM LEVOFOLINATE [Suspect]
     Active Substance: LEVOLEUCOVORIN CALCIUM
     Dosage: UNK
     Route: 041
     Dates: start: 20160914, end: 20161122
  7. FLUOROURACIL. [Suspect]
     Active Substance: FLUOROURACIL
     Dosage: 2000 MG/M2, Q2WEEKS
     Route: 040
     Dates: start: 20160816, end: 20160816
  8. OXALIPLATIN. [Suspect]
     Active Substance: OXALIPLATIN
     Indication: RECTOSIGMOID CANCER
     Dosage: 130 MG, Q2WK
     Route: 041
     Dates: start: 20160126, end: 20160301
  9. OXALIPLATIN. [Suspect]
     Active Substance: OXALIPLATIN
     Dosage: 130 MG, Q2WK
     Route: 041
     Dates: start: 20160510, end: 20160510
  10. OXALIPLATIN. [Suspect]
     Active Substance: OXALIPLATIN
     Dosage: 68 MG/M2, Q2WK
     Route: 041
     Dates: start: 20160524, end: 20160524
  11. CALCIUM LEVOFOLINATE [Suspect]
     Active Substance: LEVOLEUCOVORIN CALCIUM
     Dosage: 325 MG, Q2WEEKS
     Route: 041
     Dates: start: 20160510, end: 20160524
  12. FLUOROURACIL. [Suspect]
     Active Substance: FLUOROURACIL
     Dosage: 3900 MG, Q2WK
     Route: 041
     Dates: start: 20160510, end: 20160510
  13. FLUOROURACIL. [Suspect]
     Active Substance: FLUOROURACIL
     Dosage: 2000 MG/M2, Q2WK
     Route: 041
     Dates: start: 20160524, end: 20160524
  14. FLUOROURACIL. [Suspect]
     Active Substance: FLUOROURACIL
     Dosage: UNK
     Route: 040
     Dates: start: 20160914, end: 20161122
  15. FLUOROURACIL. [Suspect]
     Active Substance: FLUOROURACIL
     Dosage: UNK
     Route: 041
     Dates: start: 20170112
  16. PANITUMUMAB [Suspect]
     Active Substance: PANITUMUMAB
     Dosage: 350 MG, Q2WK
     Route: 041
     Dates: start: 20160329, end: 20160412
  17. PANITUMUMAB [Suspect]
     Active Substance: PANITUMUMAB
     Dosage: 350 MG, Q2WK
     Route: 041
     Dates: start: 20160719, end: 20160719
  18. FLUOROURACIL. [Suspect]
     Active Substance: FLUOROURACIL
     Dosage: 2000 MG/M2, Q2WEEKS
     Route: 040
     Dates: start: 20160524, end: 20160524
  19. FLUOROURACIL. [Suspect]
     Active Substance: FLUOROURACIL
     Dosage: 2000 MG/M2, Q2WEEKS
     Route: 040
     Dates: start: 20160719, end: 20160719
  20. PANITUMUMAB [Suspect]
     Active Substance: PANITUMUMAB
     Indication: RECTOSIGMOID CANCER
     Dosage: 350 MG, Q2WK
     Route: 041
     Dates: start: 20160126, end: 20160301
  21. PANITUMUMAB [Suspect]
     Active Substance: PANITUMUMAB
     Dosage: 350 MG, Q2WK
     Route: 041
     Dates: start: 20160510, end: 20160524
  22. PANITUMUMAB [Suspect]
     Active Substance: PANITUMUMAB
     Dosage: 350 MG, Q2WK
     Route: 041
     Dates: start: 20160816, end: 20160816
  23. OXALIPLATIN. [Suspect]
     Active Substance: OXALIPLATIN
     Dosage: 68 MG/M2, Q2WK
     Route: 041
     Dates: start: 20160816, end: 20160816
  24. CALCIUM LEVOFOLINATE [Suspect]
     Active Substance: LEVOLEUCOVORIN CALCIUM
     Dosage: 325 MG, Q2WEEKS
     Route: 041
     Dates: start: 20160719, end: 20160719
  25. FLUOROURACIL. [Suspect]
     Active Substance: FLUOROURACIL
     Dosage: 3900 MG, Q2WEEKS
     Route: 041
     Dates: start: 20160329, end: 20160412
  26. FLUOROURACIL. [Suspect]
     Active Substance: FLUOROURACIL
     Dosage: 2000 MG/M2, Q2WK
     Route: 041
     Dates: start: 20160621, end: 20160621
  27. FLUOROURACIL. [Suspect]
     Active Substance: FLUOROURACIL
     Dosage: 2000 MG/M2, Q2WK
     Route: 041
     Dates: start: 20160816, end: 20160816
  28. FLUOROURACIL. [Suspect]
     Active Substance: FLUOROURACIL
     Dosage: UNK
     Route: 040
     Dates: start: 20170112
  29. CALCIUM LEVOFOLINATE [Suspect]
     Active Substance: LEVOLEUCOVORIN CALCIUM
     Dosage: 325 MG, Q2WEEKS
     Route: 041
     Dates: start: 20160816, end: 20160816
  30. FLUOROURACIL. [Suspect]
     Active Substance: FLUOROURACIL
     Indication: RECTOSIGMOID CANCER
     Dosage: 650 MG, Q2WEEKS
     Route: 040
     Dates: start: 20160126, end: 20160301
  31. FLUOROURACIL. [Suspect]
     Active Substance: FLUOROURACIL
     Dosage: 3900 MG, Q2WK
     Route: 040
     Dates: start: 20160329, end: 20160412
  32. FLUOROURACIL. [Suspect]
     Active Substance: FLUOROURACIL
     Dosage: UNK
     Route: 041
     Dates: start: 20160914, end: 20161122
  33. PANITUMUMAB [Suspect]
     Active Substance: PANITUMUMAB
     Dosage: 350 MG, Q2WK
     Route: 041
     Dates: start: 20160621, end: 20160621
  34. OXALIPLATIN. [Suspect]
     Active Substance: OXALIPLATIN
     Dosage: 130 MG, Q2WK
     Route: 041
     Dates: start: 20160329, end: 20160412
  35. OXALIPLATIN. [Suspect]
     Active Substance: OXALIPLATIN
     Dosage: 68 MG/M2, Q2WK
     Route: 041
     Dates: start: 20160719, end: 20160719
  36. CALCIUM LEVOFOLINATE [Suspect]
     Active Substance: LEVOLEUCOVORIN CALCIUM
     Indication: RECTOSIGMOID CANCER
     Dosage: 325 MG, Q2WEEKS
     Route: 041
     Dates: start: 20160126, end: 20160301
  37. CALCIUM LEVOFOLINATE [Suspect]
     Active Substance: LEVOLEUCOVORIN CALCIUM
     Dosage: 325 MG, Q2WEEKS
     Route: 041
     Dates: start: 20160621, end: 20160621
  38. FLUOROURACIL. [Suspect]
     Active Substance: FLUOROURACIL
     Dosage: 2000 MG/M2, Q2WK
     Route: 041
     Dates: start: 20160719, end: 20160719
  39. FLUOROURACIL. [Suspect]
     Active Substance: FLUOROURACIL
     Dosage: 2000 MG/M2, Q2WEEKS
     Route: 040
     Dates: start: 20160621, end: 20160621

REACTIONS (13)
  - Urinary tract infection [Recovered/Resolved]
  - Peripheral sensory neuropathy [Recovered/Resolved]
  - Dry skin [Recovered/Resolved]
  - Palpitations [Recovered/Resolved]
  - Dizziness [Recovered/Resolved]
  - Diarrhoea [Recovered/Resolved]
  - Peripheral sensory neuropathy [Not Recovered/Not Resolved]
  - Dyspnoea [Recovered/Resolved]
  - Stomatitis [Recovered/Resolved]
  - Fatigue [Recovered/Resolved]
  - Angina pectoris [Recovering/Resolving]
  - Dermatitis acneiform [Recovered/Resolved]
  - Decreased appetite [Recovered/Resolved]

NARRATIVE: CASE EVENT DATE: 20160303
